FAERS Safety Report 16458159 (Version 2)
Quarter: 2019Q3

REPORT INFORMATION
  Report Type: Report from Study
  Country: CO (occurrence: CO)
  Receive Date: 20190620
  Receipt Date: 20190705
  Transmission Date: 20191004
  Serious: Yes (Hospitalization)
  Sender: FDA-Public Use
  Company Number: CO-ASTELLAS-2019US024812

PATIENT
  Age: 68 Year
  Sex: Male
  Weight: 65 kg

DRUGS (6)
  1. TACROLIMUS. [Suspect]
     Active Substance: TACROLIMUS
     Indication: HEART TRANSPLANT
     Dosage: 20 MG (4 CAPSULES OF 5MG), ONCE DAILY
     Route: 048
     Dates: start: 20190329, end: 20190417
  2. TACROLIMUS. [Suspect]
     Active Substance: TACROLIMUS
     Dosage: 6 MG (1 CAPSULE OF 5MG AND 1 CAPSULE OF 1MG), ONCE DAILY
     Route: 048
     Dates: start: 20190514
  3. FOLIC ACID. [Concomitant]
     Active Substance: FOLIC ACID
     Indication: HEART TRANSPLANT
     Route: 048
     Dates: start: 20190329
  4. MYCOPHENOLATE [Concomitant]
     Active Substance: MYCOPHENOLIC ACID
     Indication: HEART TRANSPLANT
     Route: 048
     Dates: start: 20190329
  5. PREDNISOLONA                       /00016201/ [Concomitant]
     Active Substance: PREDNISOLONE
     Indication: HEART TRANSPLANT
     Route: 048
     Dates: start: 20190329
  6. TACROLIMUS. [Suspect]
     Active Substance: TACROLIMUS
     Dosage: 10 MG (2 CAPSULES OF 5MG), ONCE DAILY
     Route: 048
     Dates: start: 20190417, end: 20190514

REACTIONS (4)
  - Blood creatinine increased [Recovered/Resolved]
  - Diarrhoea [Recovered/Resolved]
  - Blood potassium increased [Recovered/Resolved]
  - Blood triglycerides increased [Recovered/Resolved]

NARRATIVE: CASE EVENT DATE: 20190411
